FAERS Safety Report 8427957-6 (Version None)
Quarter: 2012Q2

REPORT INFORMATION
  Report Type: 
  Country: None (occurrence: None)
  Receive Date: 20120611
  Receipt Date: 20120531
  Transmission Date: 20120825
  Serious: Yes (Hospitalization)
  Sender: FDA-Public Use
  Company Number: US-ASTRAZENECA-2012SE27956

PATIENT
  Age: 47 Year
  Sex: Male
  Weight: 117.9 kg

DRUGS (3)
  1. SYMBICORT [Suspect]
     Dosage: 160/4.5 MCG 2 PUFFS, TWICE DAILY
     Route: 055
     Dates: start: 20110301
  2. BLOOD PRESSURE MEDICATION [Concomitant]
  3. SYMBICORT [Suspect]
     Indication: ASTHMA
     Dosage: 80/4.5 MCG 1 PUFF, TWICE DAILY
     Route: 055
     Dates: start: 20110101, end: 20110301

REACTIONS (3)
  - ASTHMA [None]
  - DRUG PRESCRIBING ERROR [None]
  - INTENTIONAL DRUG MISUSE [None]
